FAERS Safety Report 8900162 (Version 1)
Quarter: 2012Q4

REPORT INFORMATION
  Report Type: 
  Country: US (occurrence: US)
  Receive Date: 20121109
  Receipt Date: 20121109
  Transmission Date: 20130627
  Serious: No
  Sender: FDA-Public Use
  Company Number: PHEH2012US022022

PATIENT
  Sex: Female

DRUGS (9)
  1. TASIGNA [Suspect]
     Dosage: 2 DF, BID
     Route: 048
  2. OMEPRAZOLE [Concomitant]
     Dosage: 20 mg, UNK
  3. CELEXA [Concomitant]
     Dosage: 40 mg, UNK
  4. ZYRTEC [Concomitant]
     Dosage: 10 mg, UNK
  5. MIRALAX [Concomitant]
  6. ZOFRAN [Concomitant]
     Dosage: 8 mg, UNK
  7. MAGNESIUM OXIDE [Concomitant]
     Dosage: 400 mg, UNK
  8. PROBIOTIC [Concomitant]
  9. AMBIEN [Concomitant]
     Dosage: 10 mg, UNK

REACTIONS (2)
  - Fatigue [Recovered/Resolved]
  - Nausea [Recovered/Resolved]
